FAERS Safety Report 19972118 (Version 4)
Quarter: 2021Q4

REPORT INFORMATION
  Report Type: Spontaneous
  Country: AT (occurrence: AT)
  Receive Date: 20211019
  Receipt Date: 20211119
  Transmission Date: 20220303
  Serious: Yes (Other)
  Sender: FDA-Public Use
  Company Number: AT-BAUSCH-BL-2021-034286

PATIENT
  Age: 71 Year
  Sex: Male
  Weight: 78 kg

DRUGS (6)
  1. BROMFENAC SODIUM [Suspect]
     Active Substance: BROMFENAC SODIUM
     Indication: Post procedural inflammation
     Dosage: FOR 2 WEEKS
     Route: 047
     Dates: start: 20211004, end: 202110
  2. RYTMONORMA [Concomitant]
     Indication: Arrhythmia
     Dosage: 3 X 150
     Dates: start: 1994
  3. RYTMONORMA [Concomitant]
     Dosage: 300 MG IN MORNING, 150 MG IN NOON AND 300 MG AT EVENING
     Dates: start: 2006
  4. HYALURONATE SODIUM [Concomitant]
     Active Substance: HYALURONATE SODIUM
     Indication: Eye pruritus
     Dosage: ONLY IF ITCHES OR BURN
     Dates: start: 2009
  5. HYALURONATE SODIUM [Concomitant]
     Active Substance: HYALURONATE SODIUM
     Indication: Eye irritation
  6. BIOPRES [Concomitant]
     Indication: Product used for unknown indication
     Route: 065

REACTIONS (2)
  - Arrhythmia [Unknown]
  - Disease recurrence [Unknown]

NARRATIVE: CASE EVENT DATE: 20211007
